FAERS Safety Report 5134189-6 (Version None)
Quarter: 2006Q4

REPORT INFORMATION
  Report Type: 
  Country: None (occurrence: None)
  Receive Date: 20061019
  Receipt Date: 20061003
  Transmission Date: 20070319
  Serious: Yes (Other)
  Sender: FDA-Public Use
  Company Number: GB200610000576

PATIENT
  Age: 62 Year
  Sex: Female
  Weight: 73 kg

DRUGS (3)
  1. YENTREVE (DULOXETINE HYDROCHLORIDE UNKNOWN FORMULATION) UNKNOWN [Suspect]
     Dosage: 20 MG, 2/D, ORAL
     Route: 048
     Dates: start: 20060901
  2. ATENOLOL [Concomitant]
  3. BENDROFLUAZIDE (BENDROFLUAZIDE) [Concomitant]

REACTIONS (3)
  - BLOOD PRESSURE INCREASED [None]
  - DRY MOUTH [None]
  - HEADACHE [None]
